FAERS Safety Report 9240890 (Version 1)
Quarter: 2013Q1

REPORT INFORMATION
  Report Type: Spontaneous
  Country: US (occurrence: None)
  Receive Date: 20121120
  Receipt Date: 20121120
  Transmission Date: 20140127
  Serious: No
  Sender: FDA-Public Use
  Company Number: 1000037313

PATIENT
  Age: 34 Year
  Sex: Female

DRUGS (5)
  1. VIIBRYD [Suspect]
     Indication: DEPRESSION
     Route: 048
     Dates: start: 201111, end: 201111
  2. VIIBRYD [Suspect]
     Indication: DEPRESSION
     Route: 048
     Dates: start: 2012, end: 2012
  3. VIIBRYD [Suspect]
     Indication: DEPRESSION
     Route: 048
     Dates: start: 201207
  4. KLONOPIN [Concomitant]
  5. TRILEPTAL (OXCARBAZEPINE) (OXCARBAZEPINE) [Concomitant]

REACTIONS (2)
  - Panic attack [None]
  - Depression [None]
